FAERS Safety Report 13955314 (Version 1)
Quarter: 2017Q3

REPORT INFORMATION
  Report Type: Spontaneous
  Country: US (occurrence: US)
  Receive Date: 20170911
  Receipt Date: 20170911
  Transmission Date: 20171128
  Serious: Yes (Death, Hospitalization)
  Sender: FDA-Public Use
  Company Number: US-TAIHO ONCOLOGY INC-EU-2017-01122

PATIENT
  Sex: Female
  Weight: 66.28 kg

DRUGS (1)
  1. LONSURF [Suspect]
     Active Substance: TIPIRACIL HYDROCHLORIDE\TRIFLURIDINE
     Indication: COLON CANCER METASTATIC
     Dosage: CYCLE 2 STARTED ON 05JUN2017
     Route: 048
     Dates: start: 20170417, end: 201706

REACTIONS (2)
  - Cancer pain [Unknown]
  - Disease progression [Fatal]

NARRATIVE: CASE EVENT DATE: 2017
